FAERS Safety Report 6987410-3 (Version None)
Quarter: 2010Q3

REPORT INFORMATION
  Report Type: 
  Country: None (occurrence: None)
  Receive Date: 20100916
  Receipt Date: 20100909
  Transmission Date: 20110219
  Serious: No
  Sender: FDA-Public Use
  Company Number: US-PFIZER INC-2010101767

PATIENT
  Sex: Male

DRUGS (1)
  1. FLUCONAZOLE [Suspect]
     Indication: CANDIDIASIS
     Dosage: UNK
     Dates: start: 20100719

REACTIONS (1)
  - DRUG INEFFECTIVE [None]
